FAERS Safety Report 12673270 (Version 2)
Quarter: 2016Q4

REPORT INFORMATION
  Report Type: Spontaneous
  Country: US (occurrence: US)
  Receive Date: 20160822
  Receipt Date: 20161214
  Transmission Date: 20170207
  Serious: No
  Sender: FDA-Public Use
  Company Number: US-INCYTE CORPORATION-2016IN005027

PATIENT
  Sex: Male

DRUGS (1)
  1. JAKAFI [Suspect]
     Active Substance: RUXOLITINIB
     Indication: MYELOFIBROSIS
     Dosage: 10 MG, BID
     Route: 048
     Dates: start: 20160601

REACTIONS (6)
  - Feeling abnormal [Unknown]
  - Confusional state [Unknown]
  - Mental disorder [Unknown]
  - Asthenia [Unknown]
  - Memory impairment [Unknown]
  - Drug dose omission [Unknown]
